FAERS Safety Report 21933409 (Version 1)
Quarter: 2023Q1

REPORT INFORMATION
  Report Type: Spontaneous
  Country: EG (occurrence: EG)
  Receive Date: 20230131
  Receipt Date: 20230131
  Transmission Date: 20230418
  Serious: Yes (Other)
  Sender: FDA-Public Use
  Company Number: EG-NOVOPROD-1016595

PATIENT
  Sex: Female
  Weight: 85 kg

DRUGS (2)
  1. INSULIN HUMAN [Suspect]
     Active Substance: INSULIN HUMAN
     Indication: Diabetes mellitus
     Dosage: 50 IU, QD (30U MORNING -20U NIGHT)
     Route: 058
  2. ERASTAPEX [Concomitant]
     Indication: Hypertension
     Dosage: 1TAB 40ML BEFORE BREAKFAST
     Route: 048

REACTIONS (5)
  - Cataract [Unknown]
  - Retinal fibrosis [Unknown]
  - Eye haemorrhage [Unknown]
  - Anaemia [Not Recovered/Not Resolved]
  - Hyperglycaemia [Not Recovered/Not Resolved]
